FAERS Safety Report 7819096-X (Version None)
Quarter: 2011Q4

REPORT INFORMATION
  Report Type: 
  Country: None (occurrence: None)
  Receive Date: 20111018
  Receipt Date: 20111004
  Transmission Date: 20120403
  Serious: Yes (Hospitalization, Other)
  Sender: FDA-Public Use
  Company Number: US-BAYER-201038878NA

PATIENT
  Age: 30 Year
  Sex: Female
  Weight: 59 kg

DRUGS (4)
  1. XANAX [Concomitant]
  2. MULTI-VITAMINS [Concomitant]
     Dosage: UNK UNK, CONT
     Route: 048
     Dates: start: 20060101
  3. YASMIN [Suspect]
     Indication: CONTRACEPTION
     Route: 048
     Dates: start: 20030101
  4. YAZ [Suspect]
     Indication: CONTRACEPTION
     Route: 048
     Dates: start: 20030101

REACTIONS (6)
  - DISCOMFORT [None]
  - ABDOMINAL PAIN [None]
  - NAUSEA [None]
  - GALLBLADDER INJURY [None]
  - BILE DUCT STONE [None]
  - CHOLECYSTITIS CHRONIC [None]
